FAERS Safety Report 5956344-5 (Version None)
Quarter: 2008Q4

REPORT INFORMATION
  Report Type: 
  Country: None (occurrence: None)
  Receive Date: 20081112
  Receipt Date: 20081103
  Transmission Date: 20090506
  Serious: Yes (Other)
  Sender: FDA-Public Use
  Company Number: 2008AP002988

PATIENT
  Age: 6 Year
  Sex: Male

DRUGS (2)
  1. SERTRALINE HCL [Suspect]
  2. DEXTROMETHORPHAN [Suspect]

REACTIONS (6)
  - DRUG INTERACTION [None]
  - MUSCLE RIGIDITY [None]
  - MYDRIASIS [None]
  - MYOCLONUS [None]
  - OVERDOSE [None]
  - SEROTONIN SYNDROME [None]
